FAERS Safety Report 8362753-X (Version None)
Quarter: 2012Q2

REPORT INFORMATION
  Report Type: 
  Country: None (occurrence: None)
  Receive Date: 20120516
  Receipt Date: 20120502
  Transmission Date: 20120825
  Serious: Yes (Death)
  Sender: FDA-Public Use
  Company Number: PHHY2012GR040962

PATIENT

DRUGS (2)
  1. BUSULFAN [Concomitant]
     Dosage: UNK UKN, UNK
     Route: 042
  2. CYCLOSPORINE [Suspect]
     Indication: PROPHYLAXIS AGAINST GRAFT VERSUS HOST DISEASE
     Dosage: UNK UKN, UNK

REACTIONS (1)
  - DEATH [None]
